FAERS Safety Report 10245800 (Version 2)
Quarter: 2014Q3

REPORT INFORMATION
  Report Type: Spontaneous
  Country: US (occurrence: US)
  Receive Date: 20140619
  Receipt Date: 20140916
  Transmission Date: 20150326
  Serious: Yes (Hospitalization)
  Sender: FDA-Public Use
  Company Number: US-BIOGENIDEC-2014BI057789

PATIENT
  Age: 26 Year
  Sex: Female

DRUGS (2)
  1. TYSABRI [Suspect]
     Active Substance: NATALIZUMAB
     Indication: MULTIPLE SCLEROSIS
     Route: 042
     Dates: start: 20120504
  2. TYLENOL [Concomitant]
     Active Substance: ACETAMINOPHEN

REACTIONS (10)
  - Blood alkaline phosphatase increased [Unknown]
  - Blood bilirubin increased [Recovered/Resolved]
  - Gastrooesophageal reflux disease [Unknown]
  - Hepatitis infectious [Unknown]
  - Hypersensitivity [Recovered/Resolved]
  - Hepatomegaly [Not Recovered/Not Resolved]
  - Liver function test abnormal [Unknown]
  - Splenomegaly [Not Recovered/Not Resolved]
  - Autoimmune hepatitis [Unknown]
  - Abdominal pain upper [Recovered/Resolved]

NARRATIVE: CASE EVENT DATE: 20140414
